FAERS Safety Report 4333227-8 (Version None)
Quarter: 2004Q2

REPORT INFORMATION
  Report Type: 
  Country: None (occurrence: None)
  Receive Date: 20040405
  Receipt Date: 20040405
  Transmission Date: 20050107
  Serious: No
  Sender: FDA-Public Use
  Company Number: None

PATIENT
  Sex: Male
  Weight: 1013.3358 kg

DRUGS (2)
  1. HEPARIN LOCK FLUSH [Suspect]
     Dosage: 50 UNITS  Q8H        IV
     Route: 042
     Dates: start: 20040303, end: 20040324
  2. VANCOMYCIN [Concomitant]

REACTIONS (1)
  - THROMBOCYTOPENIA [None]
